FAERS Safety Report 6859437 (Version 3)
Quarter: 2018Q4

REPORT INFORMATION
  Report Type: Spontaneous
  Country: GB (occurrence: GB)
  Receive Date: 20081218
  Receipt Date: 20181218
  Transmission Date: 20190205
  Serious: Yes (Life-Threatening, Hospitalization, Disabling)
  Sender: FDA-Public Use
  Company Number: GB-PFIZER INC-2008152644

PATIENT
  Age: 9 Year
  Sex: Female

DRUGS (3)
  1. VALPROATE SODIUM. [Concomitant]
     Active Substance: VALPROATE SODIUM
     Dosage: UNK
  2. PHENYTOIN. [Suspect]
     Active Substance: PHENYTOIN
     Indication: STATUS EPILEPTICUS
     Dosage: 18 MG/KG, UNK
     Route: 042
     Dates: start: 20081117, end: 20081117
  3. CARBAMAZEPINE. [Concomitant]
     Active Substance: CARBAMAZEPINE
     Dosage: UNK

REACTIONS (1)
  - Purple glove syndrome [Recovered/Resolved with Sequelae]

NARRATIVE: CASE EVENT DATE: 20081117
